FAERS Safety Report 19013777 (Version 1)
Quarter: 2021Q1

REPORT INFORMATION
  Report Type: Spontaneous
  Country: US (occurrence: US)
  Receive Date: 20210315
  Receipt Date: 20210315
  Transmission Date: 20210420
  Serious: Yes (Death, Hospitalization)
  Sender: FDA-Public Use
  Company Number: US-LUNDBECK-DKLU3030013

PATIENT
  Age: 86 Year
  Sex: Male

DRUGS (1)
  1. NORTHERA [Suspect]
     Active Substance: DROXIDOPA
     Indication: ORTHOSTATIC HYPOTENSION
     Dosage: SCHEDULE B
     Route: 065
     Dates: start: 20170308

REACTIONS (2)
  - Death [Fatal]
  - Illness [Unknown]

NARRATIVE: CASE EVENT DATE: 20210113
